FAERS Safety Report 8128542 (Version 2)
Quarter: 2014Q1

REPORT INFORMATION
  Report Type: Spontaneous
  Country: US (occurrence: US)
  Receive Date: 20110909
  Receipt Date: 20140123
  Transmission Date: 20141002
  Serious: No
  Sender: FDA-Public Use
  Company Number: US-JNJFOC-20110901578

PATIENT
  Age: 46 Year
  Sex: Female
  Weight: 42.18 kg

DRUGS (1)
  1. DURAGESIC [Suspect]
     Indication: TERMINAL STATE
     Route: 062
     Dates: start: 201108

REACTIONS (6)
  - Hyperhidrosis [Not Recovered/Not Resolved]
  - Malaise [Not Recovered/Not Resolved]
  - Wrong technique in drug usage process [Not Recovered/Not Resolved]
  - Wrong technique in drug usage process [Not Recovered/Not Resolved]
  - Drug effect incomplete [Not Recovered/Not Resolved]
  - Product quality issue [Unknown]
